FAERS Safety Report 9683499 (Version 3)
Quarter: 2015Q1

REPORT INFORMATION
  Report Type: Other
  Country: GB (occurrence: GB)
  Receive Date: 20131112
  Receipt Date: 20150105
  Transmission Date: 20150721
  Serious: Yes (Life-Threatening, Hospitalization, Other)
  Sender: FDA-Public Use
  Company Number: GB-TAKEDA-THQ2013A05538

PATIENT
  Age: 15 Year
  Sex: Male
  Weight: 42 kg

DRUGS (15)
  1. METHOTREXATE [Suspect]
     Active Substance: METHOTREXATE
     Indication: ANAPLASTIC LARGE-CELL LYMPHOMA
     Dosage: 3900 MG, QD
     Route: 042
     Dates: start: 20130619, end: 20130619
  2. PARACETAMOL [Concomitant]
     Active Substance: ACETAMINOPHEN
     Dosage: UNK
  3. CODEINE [Concomitant]
     Active Substance: CODEINE
     Dosage: UNK
  4. MESNA. [Concomitant]
     Active Substance: MESNA
     Dosage: UNK
  5. ZOTON [Suspect]
     Active Substance: LANSOPRAZOLE
     Indication: DYSPEPSIA
     Dosage: 30 MG, QD
     Route: 048
     Dates: start: 20130525, end: 20130621
  6. GENTAMICIN. [Concomitant]
     Active Substance: GENTAMICIN
     Dosage: UNK
  7. CYTARABINE. [Concomitant]
     Active Substance: CYTARABINE
     Dosage: UNK
  8. ETOPOSIDE. [Concomitant]
     Active Substance: ETOPOSIDE
     Dosage: UNK
  9. PIPERACILLIN/TAZOBACTAM SODIUM [Concomitant]
     Dosage: UNK
  10. ONDANSETRON [Concomitant]
     Active Substance: ONDANSETRON
     Dosage: UNK
  11. PIPERACILLIN/TAZOBACTAM [Concomitant]
     Active Substance: PIPERACILLIN SODIUM\TAZOBACTAM SODIUM
     Dosage: UNK
  12. IFOSFAMIDE. [Concomitant]
     Active Substance: IFOSFAMIDE
     Dosage: UNK
  13. DEXAMETHASONE. [Concomitant]
     Active Substance: DEXAMETHASONE
     Dosage: UNK
  14. LEVOMEPROMAZINE [Concomitant]
     Active Substance: LEVOMEPROMAZINE
     Dosage: UNK
  15. CALCIUM FOLINATE [Concomitant]
     Active Substance: LEUCOVORIN CALCIUM
     Dosage: UNK

REACTIONS (6)
  - Acute kidney injury [Unknown]
  - White blood cell count increased [Recovered/Resolved]
  - Renal failure [Unknown]
  - Tubulointerstitial nephritis [Recovering/Resolving]
  - Blood creatine increased [Unknown]
  - Abdominal pain [Unknown]

NARRATIVE: CASE EVENT DATE: 20130620
